FAERS Safety Report 6212178-8 (Version None)
Quarter: 2009Q2

REPORT INFORMATION
  Report Type: 
  Country: None (occurrence: None)
  Receive Date: 20090602
  Receipt Date: 20090526
  Transmission Date: 20091009
  Serious: Yes (Hospitalization, Other)
  Sender: FDA-Public Use
  Company Number: GB-SANOFI-SYNTHELABO-A01200802306

PATIENT
  Age: 67 Year
  Sex: Female

DRUGS (9)
  1. ACETAMINOPHEN W/ CODEINE [Concomitant]
     Indication: PAIN
     Dosage: UNK
     Route: 048
  2. BRICARYL [Concomitant]
     Indication: CHRONIC OBSTRUCTIVE PULMONARY DISEASE
     Dosage: UNK
     Route: 055
  3. SERETIDE [Concomitant]
     Indication: CHRONIC OBSTRUCTIVE PULMONARY DISEASE
     Dosage: UNK
     Route: 055
  4. LOSEC [Concomitant]
     Indication: ABDOMINAL PAIN UPPER
     Route: 048
  5. LEVOTHYROXINE SODIUM [Concomitant]
     Indication: HYPOTHYROIDISM
     Route: 048
  6. SIMVASTATIN [Concomitant]
  7. FLUTICASONE [Concomitant]
  8. CAPECITABINE [Suspect]
     Indication: COLON CANCER METASTATIC
     Route: 048
  9. OXALIPLATIN [Suspect]
     Route: 042
     Dates: start: 20080108, end: 20080108

REACTIONS (2)
  - ARTERIOSPASM CORONARY [None]
  - DYSAESTHESIA PHARYNX [None]
